FAERS Safety Report 16724820 (Version 2)
Quarter: 2019Q3

REPORT INFORMATION
  Report Type: Report from Study
  Country: US (occurrence: US)
  Receive Date: 20190821
  Receipt Date: 20190903
  Transmission Date: 20191005
  Serious: Yes (Other)
  Sender: FDA-Public Use
  Company Number: US-ROCHE-2376004

PATIENT
  Age: 62 Year
  Sex: Female
  Weight: 63.56 kg

DRUGS (5)
  1. OCREVUS [Suspect]
     Active Substance: OCRELIZUMAB
     Indication: MULTIPLE SCLEROSIS
  2. BENADRYL [Suspect]
     Active Substance: DIPHENHYDRAMINE HYDROCHLORIDE
     Indication: PRODUCT USED FOR UNKNOWN INDICATION
     Route: 065
  3. OCREVUS [Suspect]
     Active Substance: OCRELIZUMAB
     Indication: RELAPSING MULTIPLE SCLEROSIS
     Route: 042
     Dates: start: 20180808
  4. FLUCONAZOLE. [Concomitant]
     Active Substance: FLUCONAZOLE
     Indication: FUNGAL INFECTION
     Dosage: FOR 2 WEEKS
     Route: 048
  5. VALTREX [Concomitant]
     Active Substance: VALACYCLOVIR HYDROCHLORIDE
     Indication: HERPES VIRUS INFECTION
     Route: 065

REACTIONS (21)
  - Multiple sclerosis relapse [Recovered/Resolved]
  - Candida infection [Recovered/Resolved]
  - Headache [Unknown]
  - Discomfort [Unknown]
  - Diarrhoea [Recovered/Resolved]
  - Fungal pharyngitis [Not Recovered/Not Resolved]
  - Visual impairment [Not Recovered/Not Resolved]
  - Cognitive disorder [Not Recovered/Not Resolved]
  - Fatigue [Recovered/Resolved]
  - Dysphagia [Not Recovered/Not Resolved]
  - Hypertension [Not Recovered/Not Resolved]
  - Anal incontinence [Not Recovered/Not Resolved]
  - Nasopharyngitis [Unknown]
  - Sensation of foreign body [Unknown]
  - Somnolence [Recovered/Resolved]
  - Malaise [Unknown]
  - Weight increased [Not Recovered/Not Resolved]
  - Genital herpes [Recovered/Resolved]
  - Bowel movement irregularity [Recovered/Resolved]
  - Fatigue [Recovered/Resolved]
  - Mydriasis [Recovered/Resolved]

NARRATIVE: CASE EVENT DATE: 20180808
